FAERS Safety Report 6323128-8 (Version None)
Quarter: 2009Q3

REPORT INFORMATION
  Report Type: 
  Country: None (occurrence: None)
  Receive Date: 20090824
  Receipt Date: 20090318
  Transmission Date: 20100115
  Serious: No
  Sender: FDA-Public Use
  Company Number: US-ABBOTT-09P-163-0563289-00

PATIENT
  Sex: Female
  Weight: 67.192 kg

DRUGS (1)
  1. NIASPAN [Suspect]
     Indication: BLOOD CHOLESTEROL INCREASED
     Dates: start: 20090303, end: 20090308

REACTIONS (3)
  - BLISTER [None]
  - RASH [None]
  - SCAR [None]
